FAERS Safety Report 8339233-0 (Version None)
Quarter: 2012Q2

REPORT INFORMATION
  Report Type: 
  Country: None (occurrence: None)
  Receive Date: 20120507
  Receipt Date: 20120426
  Transmission Date: 20120825
  Serious: Yes (Hospitalization)
  Sender: FDA-Public Use
  Company Number: BR-US-EMD SERONO, INC.-7129103

PATIENT
  Sex: Female

DRUGS (1)
  1. REBIF [Suspect]
     Indication: RELAPSING-REMITTING MULTIPLE SCLEROSIS
     Dates: start: 20120201, end: 20120401

REACTIONS (6)
  - VISION BLURRED [None]
  - DIZZINESS [None]
  - BLEPHAROSPASM [None]
  - BALANCE DISORDER [None]
  - OPTIC NEURITIS [None]
  - CENTRAL NERVOUS SYSTEM LESION [None]
